FAERS Safety Report 12717140 (Version 1)
Quarter: 2016Q3

REPORT INFORMATION
  Report Type: Spontaneous
  Country: SG (occurrence: SG)
  Receive Date: 20160906
  Receipt Date: 20160906
  Transmission Date: 20161109
  Serious: Yes (Hospitalization)
  Sender: FDA-Public Use
  Company Number: SG-IPCA LABORATORIES LIMITED-IPC201608-000726

PATIENT
  Age: 35 Year
  Sex: Male

DRUGS (2)
  1. TRAMADOL. [Suspect]
     Active Substance: TRAMADOL
     Indication: PAIN
     Route: 048
  2. TRAMADOL. [Suspect]
     Active Substance: TRAMADOL
     Route: 042

REACTIONS (4)
  - Oedema peripheral [Recovered/Resolved]
  - Ascites [Unknown]
  - Pleural effusion [Unknown]
  - Hydrocele [Unknown]
